FAERS Safety Report 9080822 (Version 2)
Quarter: 2013Q2

REPORT INFORMATION
  Report Type: Spontaneous
  Country: FR (occurrence: FR)
  Receive Date: 20130218
  Receipt Date: 20130416
  Transmission Date: 20140414
  Serious: Yes (Other)
  Sender: FDA-Public Use
  Company Number: FR-JNJFOC-20130206546

PATIENT
  Age: 58 Year
  Sex: Female
  Weight: 112 kg

DRUGS (3)
  1. STELARA [Suspect]
     Indication: PSORIASIS
     Route: 058
  2. STELARA [Suspect]
     Indication: PSORIASIS
     Route: 058
     Dates: start: 20111103
  3. METOJECT [Concomitant]
     Indication: PRODUCT USED FOR UNKNOWN INDICATION
     Route: 065
     Dates: start: 2006

REACTIONS (1)
  - VIIth nerve paralysis [Recovered/Resolved]
